FAERS Safety Report 12700854 (Version 8)
Quarter: 2016Q4

REPORT INFORMATION
  Report Type: Spontaneous
  Country: US (occurrence: US)
  Receive Date: 20160830
  Receipt Date: 20161212
  Transmission Date: 20170207
  Serious: Yes (Other)
  Sender: FDA-Public Use
  Company Number: US-LUNDBECK-DKLU2017936

PATIENT
  Age: 83 Year
  Sex: Female
  Weight: 42 kg

DRUGS (7)
  1. NORTHERA [Suspect]
     Active Substance: DROXIDOPA
     Indication: PARKINSON^S DISEASE
     Route: 048
     Dates: start: 20160812
  2. NORTHERA [Suspect]
     Active Substance: DROXIDOPA
     Indication: ORTHOSTATIC HYPOTENSION
     Route: 065
     Dates: start: 20160812
  3. NORTHERA [Suspect]
     Active Substance: DROXIDOPA
     Dosage: SCHEDULE C
     Route: 065
     Dates: start: 20160831
  4. CARBIDOPA/LEVODOPA [Concomitant]
     Active Substance: CARBIDOPA\LEVODOPA
     Indication: PARKINSONISM
     Dosage: 25/100
     Route: 065
     Dates: start: 20151004
  5. NORTHERA [Suspect]
     Active Substance: DROXIDOPA
     Dosage: SCHEDULE C
     Route: 065
  6. NORTHERA [Suspect]
     Active Substance: DROXIDOPA
     Route: 065
  7. LEVODOPA [Concomitant]
     Active Substance: LEVODOPA
     Indication: PARKINSON^S DISEASE
     Route: 065

REACTIONS (24)
  - Feeling abnormal [Unknown]
  - Pain in extremity [Unknown]
  - Tension [Unknown]
  - Hypertension [Recovering/Resolving]
  - Activities of daily living impaired [Unknown]
  - Heart rate decreased [Unknown]
  - Pollakiuria [Unknown]
  - Hiccups [Unknown]
  - Mood swings [Not Recovered/Not Resolved]
  - Agitation [Recovering/Resolving]
  - Neuroleptic malignant syndrome [Unknown]
  - Poor quality sleep [Unknown]
  - Crying [Not Recovered/Not Resolved]
  - Dehydration [Unknown]
  - Bradyphrenia [Recovering/Resolving]
  - Fatigue [Recovering/Resolving]
  - Dizziness [Unknown]
  - Gait disturbance [Unknown]
  - Dysarthria [Recovering/Resolving]
  - Underdose [Recovered/Resolved]
  - Blood pressure decreased [Unknown]
  - Sleep disorder [Unknown]
  - Dry mouth [Unknown]
  - Musculoskeletal stiffness [Recovering/Resolving]

NARRATIVE: CASE EVENT DATE: 201608
